FAERS Safety Report 6574795-5 (Version None)
Quarter: 2010Q1

REPORT INFORMATION
  Report Type: 
  Country: None (occurrence: None)
  Receive Date: 20100209
  Receipt Date: 20100126
  Transmission Date: 20100710
  Serious: Yes (Hospitalization)
  Sender: FDA-Public Use
  Company Number: PHHY2010GR03916

PATIENT
  Sex: Female
  Weight: 71 kg

DRUGS (2)
  1. EXJADE [Suspect]
     Indication: CHELATION THERAPY
     Dosage: 1750 MG DAILY
     Route: 048
     Dates: start: 20090901, end: 20100125
  2. SALOSPIR [Concomitant]
     Indication: SPLENECTOMY
     Dosage: 10 MG PER DAY
     Dates: start: 20060101

REACTIONS (3)
  - ABDOMINAL PAIN UPPER [None]
  - GASTRIC PERFORATION [None]
  - MUSCULOSKELETAL PAIN [None]
